FAERS Safety Report 16982627 (Version 1)
Quarter: 2019Q4

REPORT INFORMATION
  Report Type: Spontaneous
  Country: US (occurrence: US)
  Receive Date: 20191101
  Receipt Date: 20191101
  Transmission Date: 20200122
  Serious: No
  Sender: FDA-Public Use
  Company Number: US-BAYER-2019-197479

PATIENT
  Age: 74 Year
  Sex: Male
  Weight: 91 kg

DRUGS (4)
  1. NIZORAL [Concomitant]
     Active Substance: KETOCONAZOLE
     Dosage: UNK
  2. PAXIL [PIROXICAM] [Concomitant]
     Active Substance: PIROXICAM
     Dosage: UNK
  3. ALEVE [Suspect]
     Active Substance: NAPROXEN SODIUM
     Indication: PAIN
     Dosage: 2 DF
     Route: 048
     Dates: start: 20191031, end: 20191031
  4. NORCO [Concomitant]
     Active Substance: ACETAMINOPHEN\HYDROCODONE BITARTRATE
     Dosage: UNK

REACTIONS (1)
  - Vomiting [Recovered/Resolved]

NARRATIVE: CASE EVENT DATE: 20191031
